FAERS Safety Report 5022563-8 (Version None)
Quarter: 2006Q2

REPORT INFORMATION
  Report Type: 
  Country: None (occurrence: None)
  Receive Date: 20060609
  Receipt Date: 20060530
  Transmission Date: 20061013
  Serious: Yes (Death)
  Sender: FDA-Public Use
  Company Number: JP-SANOFI-SYNTHELABO-A01200604282

PATIENT
  Age: 79 Year
  Sex: Male

DRUGS (10)
  1. THIATON [Concomitant]
     Indication: DRUG USE FOR UNKNOWN INDICATION
     Route: 048
  2. LASIX [Concomitant]
     Indication: DRUG USE FOR UNKNOWN INDICATION
     Dosage: 120 MG
     Route: 048
  3. ALLOTPO [Concomitant]
     Indication: DRUG USE FOR UNKNOWN INDICATION
     Dosage: 75 MG
     Route: 048
  4. CEVOZYL [Concomitant]
     Indication: DRUG USE FOR UNKNOWN INDICATION
     Dosage: 75 MG
     Route: 048
  5. GAMOFA [Concomitant]
     Indication: DRUG USE FOR UNKNOWN INDICATION
     Dosage: 20 MG
     Route: 048
  6. CERNILTON [Concomitant]
     Indication: DRUG USE FOR UNKNOWN INDICATION
     Dosage: 441 MG
     Route: 048
  7. URSO [Concomitant]
     Indication: DRUG USE FOR UNKNOWN INDICATION
     Dosage: 300 MG
     Route: 048
  8. PENTAZOCINE LACTATE [Suspect]
     Indication: SEDATION
     Dosage: 25 MG
     Route: 048
     Dates: start: 20060522, end: 20060522
  9. PENTAZOCINE LACTATE [Suspect]
     Dosage: 100 MG
     Route: 048
     Dates: start: 20060523, end: 20060527
  10. PENTAZOCINE LACTATE [Suspect]
     Dosage: 150 MG
     Route: 048
     Dates: start: 20060528, end: 20060528

REACTIONS (1)
  - HEPATIC FAILURE [None]
